FAERS Safety Report 19405960 (Version 1)
Quarter: 2021Q2

REPORT INFORMATION
  Report Type: Other
  Country: NL (occurrence: NL)
  Receive Date: 20210611
  Receipt Date: 20210611
  Transmission Date: 20210717
  Serious: Yes (Life-Threatening, Hospitalization)
  Sender: FDA-Public Use
  Company Number: NL-ROCHE-2806203

PATIENT
  Age: 72 Year
  Sex: Male

DRUGS (7)
  1. RITUXIMAB. [Suspect]
     Active Substance: RITUXIMAB
     Indication: CHRONIC LYMPHOCYTIC LEUKAEMIA
     Dosage: UNK
     Route: 065
  2. FLUDARABINE PHOSPHATE. [Suspect]
     Active Substance: FLUDARABINE PHOSPHATE
     Indication: CHRONIC LYMPHOCYTIC LEUKAEMIA
     Dosage: UNK
     Route: 065
  3. RITUXIMAB. [Suspect]
     Active Substance: RITUXIMAB
     Indication: B-CELL SMALL LYMPHOCYTIC LYMPHOMA
  4. FLUDARABINE PHOSPHATE. [Suspect]
     Active Substance: FLUDARABINE PHOSPHATE
     Indication: B-CELL SMALL LYMPHOCYTIC LYMPHOMA
  5. CYCLOPHOSPHAMIDE. [Suspect]
     Active Substance: CYCLOPHOSPHAMIDE
     Indication: CHRONIC LYMPHOCYTIC LEUKAEMIA
  6. CHLORAMBUCIL [Concomitant]
     Active Substance: CHLORAMBUCIL
     Indication: B-CELL SMALL LYMPHOCYTIC LYMPHOMA
     Dosage: UNK
     Route: 065
  7. CYCLOPHOSPHAMIDE. [Suspect]
     Active Substance: CYCLOPHOSPHAMIDE
     Indication: B-CELL SMALL LYMPHOCYTIC LYMPHOMA
     Dosage: UNK
     Route: 065

REACTIONS (5)
  - Tumour lysis syndrome [Recovered/Resolved]
  - Hypotension [Recovered/Resolved]
  - Acute kidney injury [Recovered/Resolved]
  - Bradycardia [Recovered/Resolved]
  - Malaise [Recovered/Resolved]
